FAERS Safety Report 23830886 (Version 1)
Quarter: 2024Q2

REPORT INFORMATION
  Report Type: Report from Study
  Country: CA (occurrence: None)
  Receive Date: 20240508
  Receipt Date: 20240508
  Transmission Date: 20240716
  Serious: Yes (Hospitalization)
  Sender: FDA-Public Use
  Company Number: 2024A088884

PATIENT
  Sex: Male

DRUGS (7)
  1. TEZEPELUMAB-EKKO [Suspect]
     Active Substance: TEZEPELUMAB-EKKO
     Indication: Asthma
     Dosage: 210.0MG UNKNOWN
     Route: 058
     Dates: start: 20230308
  2. BREO ELLIPTA [Concomitant]
     Active Substance: FLUTICASONE FUROATE\VILANTEROL TRIFENATATE
     Dosage: 200MCG-25MCG 1 TIME PER DAY
  3. AMIODARONE [Concomitant]
     Active Substance: AMIODARONE
     Dosage: 100MG 1 X DAILY
  4. SPIRONOLACTION [Concomitant]
     Dosage: 25MG 1 PILL
  5. DILTIAZEM [Concomitant]
     Active Substance: DILTIAZEM
     Dosage: 120MG 1 PILL DAILY
  6. VENTOLIN [Concomitant]
     Active Substance: ALBUTEROL SULFATE
     Dosage: 100MCG
  7. SPIRIVA RESPIMAT [Concomitant]
     Active Substance: TIOTROPIUM BROMIDE
     Dosage: 2.5MCG 2 PUFFS/DAILY

REACTIONS (2)
  - Chest pain [Unknown]
  - Troponin increased [Unknown]
